FAERS Safety Report 6696020-7 (Version None)
Quarter: 2010Q2

REPORT INFORMATION
  Report Type: 
  Country: None (occurrence: None)
  Receive Date: 20100426
  Receipt Date: 20100413
  Transmission Date: 20101027
  Serious: Yes (Other)
  Sender: FDA-Public Use
  Company Number: PHHY2010US25977

PATIENT
  Age: 51 Year
  Sex: Female

DRUGS (1)
  1. RECLAST [Suspect]

REACTIONS (4)
  - ANGINA PECTORIS [None]
  - ARTHRALGIA [None]
  - FEELING ABNORMAL [None]
  - INFLUENZA [None]
